FAERS Safety Report 9563751 (Version 2)
Quarter: 2013Q4

REPORT INFORMATION
  Report Type: Spontaneous
  Country: US (occurrence: None)
  Receive Date: 20130926
  Receipt Date: 20131003
  Transmission Date: 20140711
  Serious: Yes (Other)
  Sender: FDA-Public Use
  Company Number: 2013SA092586

PATIENT
  Age: 48 Year
  Sex: Female

DRUGS (1)
  1. ICY HOT POWER GEL [Suspect]
     Indication: NECK PAIN

REACTIONS (5)
  - Scar [None]
  - Skin discolouration [None]
  - Oropharyngeal pain [None]
  - Chemical injury [None]
  - Pain of skin [None]
